FAERS Safety Report 4423934-0 (Version None)
Quarter: 2004Q3

REPORT INFORMATION
  Report Type: 
  Country: None (occurrence: None)
  Receive Date: 20040805
  Receipt Date: 20040727
  Transmission Date: 20050211
  Serious: Yes (Death, Hospitalization)
  Sender: FDA-Public Use
  Company Number: 2004225754GB

PATIENT
  Age: 82 Year
  Sex: Male

DRUGS (7)
  1. CABERGOLINE [Suspect]
     Indication: PARKINSON'S DISEASE
     Dosage: 0.5MG, 1MG, 1.5MG, 2MG, 3MG, QD, ORAL
     Route: 048
     Dates: end: 20030501
  2. CABERGOLINE [Suspect]
     Indication: PARKINSON'S DISEASE
     Dosage: 0.5MG, 1MG, 1.5MG, 2MG, 3MG, QD, ORAL
     Route: 048
     Dates: start: 20030201
  3. CABERGOLINE [Suspect]
     Indication: PARKINSON'S DISEASE
     Dosage: 0.5MG, 1MG, 1.5MG, 2MG, 3MG, QD, ORAL
     Route: 048
  4. CABERGOLINE [Suspect]
     Indication: PARKINSON'S DISEASE
     Dosage: 0.5MG, 1MG, 1.5MG, 2MG, 3MG, QD, ORAL
     Route: 048
  5. CABERGOLINE [Suspect]
     Indication: PARKINSON'S DISEASE
     Dosage: 0.5MG, 1MG, 1.5MG, 2MG, 3MG, QD, ORAL
     Route: 048
  6. NIFEDIPINE [Concomitant]
  7. SINEMET [Concomitant]

REACTIONS (2)
  - OEDEMA [None]
  - PNEUMONIA STAPHYLOCOCCAL [None]
